FAERS Safety Report 12921394 (Version 1)
Quarter: 2016Q4

REPORT INFORMATION
  Report Type: Spontaneous
  Country: GB (occurrence: GB)
  Receive Date: 20161108
  Receipt Date: 20161108
  Transmission Date: 20170207
  Serious: Yes (Other)
  Sender: FDA-Public Use
  Company Number: GB-TEVA-708414ACC

PATIENT
  Age: 58 Year
  Sex: Female
  Weight: 75 kg

DRUGS (4)
  1. AMITRIPTYLINE HYDROCHLORIDE. [Concomitant]
     Active Substance: AMITRIPTYLINE HYDROCHLORIDE
     Dosage: 4 DOSAGE FORMS DAILY; AT NIGHT.
     Dates: start: 20160108
  2. CITALOPRAM [Suspect]
     Active Substance: CITALOPRAM HYDROBROMIDE
     Dates: start: 20160822
  3. TAMOXIFEN [Concomitant]
     Active Substance: TAMOXIFEN
     Dosage: 1 DOSAGE FORMS DAILY;
     Dates: start: 20130805, end: 20160728
  4. ACICLOVIR [Concomitant]
     Active Substance: ACYCLOVIR
     Dosage: TO BE TAKEN AS DIRECTED.
     Dates: start: 20160613

REACTIONS (3)
  - Vitreous floaters [Unknown]
  - Vitreous detachment [Unknown]
  - Visual impairment [Not Recovered/Not Resolved]

NARRATIVE: CASE EVENT DATE: 20161017
